FAERS Safety Report 5855514-4 (Version None)
Quarter: 2008Q3

REPORT INFORMATION
  Report Type: 
  Country: None (occurrence: None)
  Receive Date: 20080821
  Receipt Date: 20080812
  Transmission Date: 20090109
  Serious: Yes (Hospitalization, Other)
  Sender: FDA-Public Use
  Company Number: 2008BI020852

PATIENT
  Age: 52 Year
  Sex: Female

DRUGS (1)
  1. AVONEX [Suspect]
     Indication: MULTIPLE SCLEROSIS
     Dosage: 3 UG; IM
     Route: 030

REACTIONS (5)
  - CONVULSION [None]
  - HEPATIC FUNCTION ABNORMAL [None]
  - LIVER INJURY [None]
  - PYREXIA [None]
  - URINARY TRACT INFECTION [None]
